FAERS Safety Report 21817477 (Version 2)
Quarter: 2023Q1

REPORT INFORMATION
  Report Type: Spontaneous
  Country: US (occurrence: US)
  Receive Date: 20230104
  Receipt Date: 20230113
  Transmission Date: 20230418
  Serious: Yes (Other)
  Sender: FDA-Public Use
  Company Number: US-DSJP-DSU-2022-147509

PATIENT
  Age: 74 Year
  Sex: Male

DRUGS (1)
  1. ENHERTU [Suspect]
     Active Substance: FAM-TRASTUZUMAB DERUXTECAN-NXKI
     Indication: Colon cancer
     Route: 065

REACTIONS (5)
  - Haemolytic anaemia [Not Recovered/Not Resolved]
  - Renal function test abnormal [Unknown]
  - Haemoglobin decreased [Unknown]
  - Fatigue [Unknown]
  - Off label use [Unknown]
